FAERS Safety Report 8532183-6 (Version None)
Quarter: 2012Q3

REPORT INFORMATION
  Report Type: 
  Country: None (occurrence: None)
  Receive Date: 20120723
  Receipt Date: 20120711
  Transmission Date: 20120928
  Serious: Yes (Hospitalization)
  Sender: FDA-Public Use
  Company Number: JP-009507513-1207USA00142

PATIENT

DRUGS (17)
  1. LASIX [Concomitant]
     Dosage: 20 MG, QD
     Route: 048
     Dates: start: 20120601, end: 20120604
  2. PREDNISOLONE [Concomitant]
     Dosage: 5 MG, QD
     Route: 048
     Dates: start: 20120601, end: 20120604
  3. AMITRIPTYLINE HCL [Suspect]
     Indication: HYPERTONIC BLADDER
     Dosage: 10 MG, QD
     Route: 048
     Dates: start: 20120523, end: 20120604
  4. FLUCONAZOLE [Concomitant]
     Dosage: 100 MG, QD
     Route: 048
     Dates: start: 20120601, end: 20120604
  5. MAGNESIUM OXIDE [Concomitant]
     Dosage: 3 G, QD
     Dates: start: 20120601, end: 20120604
  6. FAMOTIDINE [Suspect]
     Indication: NASOPHARYNGITIS
     Dosage: 40 MG, QD
     Route: 048
     Dates: start: 20120530, end: 20120604
  7. COLDRIN (CHLOPHEDIANOL HYDROCHLORIDE) [Suspect]
     Indication: POLLAKIURIA
  8. GASMOTIN [Concomitant]
     Dosage: 15 MG, QD
     Route: 048
     Dates: start: 20120530, end: 20120604
  9. D-ALPHA [Concomitant]
     Dosage: UNK
     Route: 048
     Dates: start: 20120601, end: 20120604
  10. DAIPHEN [Concomitant]
     Dosage: UNK
     Route: 048
     Dates: start: 20120601, end: 20120604
  11. AMITRIPTYLINE HCL [Suspect]
     Indication: POLLAKIURIA
  12. COLDRIN (CHLOPHEDIANOL HYDROCHLORIDE) [Suspect]
     Indication: HYPERTONIC BLADDER
     Dosage: 24 MG, QD
     Route: 048
     Dates: start: 20120523, end: 20120604
  13. REBAMIPIDE [Concomitant]
     Dosage: 300 MG, QD
     Route: 048
     Dates: start: 20120530, end: 20120604
  14. URITOS [Concomitant]
     Indication: POLLAKIURIA
     Dosage: 10 MG, QD
     Route: 048
     Dates: start: 20120530, end: 20120604
  15. ALENDRONATE SODIUM [Concomitant]
     Dosage: 35 MG, QD
     Route: 048
     Dates: start: 20120601, end: 20120604
  16. PL-GRANULES [Suspect]
     Indication: NASOPHARYNGITIS
     Dosage: 3 G, UNK
     Route: 048
     Dates: start: 20120530, end: 20120604
  17. FORSENID [Concomitant]
     Dosage: 24 MG, QD
     Route: 048
     Dates: start: 20120530, end: 20120604

REACTIONS (1)
  - STEVENS-JOHNSON SYNDROME [None]
